FAERS Safety Report 19969140 (Version 2)
Quarter: 2021Q4

REPORT INFORMATION
  Report Type: Spontaneous
  Country: US (occurrence: US)
  Receive Date: 20211019
  Receipt Date: 20211206
  Transmission Date: 20220304
  Serious: No
  Sender: FDA-Public Use
  Company Number: US-UROGEN PHARMA LTD.-2021-UGN-000067

PATIENT
  Age: 78 Year
  Sex: Female

DRUGS (14)
  1. JELMYTO [Suspect]
     Active Substance: MITOMYCIN
     Indication: Product used for unknown indication
     Dosage: ONE TIMES PER WEEK (8 CC ) (INSTILLATION)
     Dates: start: 20210511, end: 20210511
  2. JELMYTO [Suspect]
     Active Substance: MITOMYCIN
     Dosage: ONE TIMES PER WEEK (8 CC ) (INSTILLATION)
     Dates: start: 2021, end: 2021
  3. JELMYTO [Suspect]
     Active Substance: MITOMYCIN
     Dosage: ONE TIMES PER WEEK (8 CC ) (INSTILLATION)
     Dates: start: 2021, end: 2021
  4. JELMYTO [Suspect]
     Active Substance: MITOMYCIN
     Dosage: ONE TIMES PER WEEK (8 CC ) (INSTILLATION)
     Dates: start: 2021, end: 2021
  5. JELMYTO [Suspect]
     Active Substance: MITOMYCIN
     Dosage: ONE TIMES PER WEEK (8 CC ) (INSTILLATION)
     Dates: start: 2021, end: 2021
  6. JELMYTO [Suspect]
     Active Substance: MITOMYCIN
     Dosage: ONE TIMES PER WEEK (8 CC ) (INSTILLATION)
     Dates: start: 20210615, end: 20210615
  7. JELMYTO [Suspect]
     Active Substance: MITOMYCIN
     Dosage: 32 UNITS, EVERY 7 DAYS VIA NEPH TUBE
     Dates: start: 20210819, end: 20210819
  8. JELMYTO [Suspect]
     Active Substance: MITOMYCIN
     Dosage: 32 UNITS, EVERY 7 DAYS VIA NEPH TUBE
     Dates: start: 20210826, end: 20210826
  9. JELMYTO [Suspect]
     Active Substance: MITOMYCIN
     Dosage: 32 UNITS, EVERY 7 DAYS VIA NEPH TUBE
     Dates: start: 20210831, end: 20210831
  10. JELMYTO [Suspect]
     Active Substance: MITOMYCIN
     Dosage: 32 UNITS, EVERY 7 DAYS VIA NEPH TUBE
     Dates: start: 20210914, end: 20210914
  11. GEMTESA [Concomitant]
     Active Substance: VIBEGRON
     Indication: Product used for unknown indication
  12. VIMPAT [Concomitant]
     Active Substance: LACOSAMIDE
     Indication: Product used for unknown indication
  13. TOPROL XL [Concomitant]
     Active Substance: METOPROLOL SUCCINATE
     Indication: Product used for unknown indication
  14. VITAMIN D [Concomitant]
     Active Substance: VITAMIN D NOS
     Indication: Product used for unknown indication

REACTIONS (1)
  - Rash pruritic [Unknown]

NARRATIVE: CASE EVENT DATE: 20210819
